FAERS Safety Report 24444916 (Version 2)
Quarter: 2024Q4

REPORT INFORMATION
  Report Type: Report from Study
  Country: US (occurrence: US)
  Receive Date: 20241016
  Receipt Date: 20241017
  Transmission Date: 20250115
  Serious: No
  Sender: ROCHE
  Company Number: US-ROCHE-2846131

PATIENT
  Age: 66 Year
  Sex: Female
  Weight: 112.49 kg

DRUGS (3)
  1. RITUXAN [Suspect]
     Active Substance: RITUXIMAB
     Indication: Haematuria
     Dosage: 500 MG SINGLE-USE VIAL
     Route: 041
     Dates: start: 20210603, end: 20220603
  2. RITUXAN [Suspect]
     Active Substance: RITUXIMAB
     Indication: Glomerulonephritis membranous
  3. RITUXAN [Suspect]
     Active Substance: RITUXIMAB
     Indication: Chronic kidney disease

REACTIONS (2)
  - Off label use [Unknown]
  - No adverse event [Unknown]
